FAERS Safety Report 6730559-0 (Version None)
Quarter: 2010Q2

REPORT INFORMATION
  Report Type: 
  Country: None (occurrence: None)
  Receive Date: 20100514
  Receipt Date: 20100506
  Transmission Date: 20101027
  Serious: Yes (Death, Hospitalization)
  Sender: FDA-Public Use
  Company Number: 99489

PATIENT
  Age: 76 Year
  Sex: Female

DRUGS (1)
  1. ADRIAMYCIN PFS [Suspect]
     Indication: HEPATIC NEOPLASM MALIGNANT

REACTIONS (8)
  - ABDOMINAL DISTENSION [None]
  - HAEMODIALYSIS [None]
  - HYPOCALCAEMIA [None]
  - PAIN [None]
  - PNEUMONIA ASPIRATION [None]
  - RENAL FAILURE ACUTE [None]
  - SEPSIS [None]
  - TUMOUR LYSIS SYNDROME [None]
